FAERS Safety Report 9979449 (Version 2)
Quarter: 2014Q1

REPORT INFORMATION
  Report Type: Report from Study
  Country: US (occurrence: US)
  Receive Date: 20140306
  Receipt Date: 20140306
  Transmission Date: 20141002
  Serious: Yes (Hospitalization, Other)
  Sender: FDA-Public Use
  Company Number: US-ABBVIE-13P-163-1141335-00

PATIENT
  Age: 42 Year
  Sex: Female
  Weight: 69.92 kg

DRUGS (9)
  1. HUMIRA [Suspect]
     Indication: CROHN^S DISEASE
     Dosage: ONE DOSE/LOADING DOSE/4 PENS
     Dates: start: 20130517, end: 20130517
  2. HUMIRA [Suspect]
     Dosage: ONE DOSE
     Dates: start: 20130531, end: 20130531
  3. HUMIRA [Suspect]
     Dates: start: 20130614
  4. SOMA [Concomitant]
     Indication: PAIN
     Route: 048
  5. LYRICA [Concomitant]
     Indication: PAIN
     Route: 048
  6. OXYCODONE [Concomitant]
     Indication: PAIN
     Route: 048
  7. XANAX [Concomitant]
     Indication: PRODUCT USED FOR UNKNOWN INDICATION
     Dosage: AT BEDTIME
  8. DOXYCYCLINE [Concomitant]
     Indication: PRODUCT USED FOR UNKNOWN INDICATION
     Dosage: FOR A TOTAL OF 10 DAYS
     Route: 048
  9. POTASSIUM CHLORIDE [Concomitant]
     Indication: PRODUCT USED FOR UNKNOWN INDICATION
     Dosage: 20 MEQ DAILY FOR A TOTAL OF 20 DAYS
     Route: 048

REACTIONS (29)
  - Deep vein thrombosis [Not Recovered/Not Resolved]
  - Deep vein thrombosis [Not Recovered/Not Resolved]
  - Vomiting [Recovered/Resolved]
  - Dehydration [Recovered/Resolved]
  - Diarrhoea [Recovered/Resolved]
  - Crohn^s disease [Recovered/Resolved]
  - Weight decreased [Recovered/Resolved]
  - Joint swelling [Not Recovered/Not Resolved]
  - Local swelling [Not Recovered/Not Resolved]
  - Anal abscess [Recovered/Resolved]
  - Decreased appetite [Recovered/Resolved]
  - Inflammation [Recovered/Resolved]
  - Muscular weakness [Not Recovered/Not Resolved]
  - Pain in extremity [Not Recovered/Not Resolved]
  - Drug effect incomplete [Not Recovered/Not Resolved]
  - Vulva cyst [Recovering/Resolving]
  - Hypokalaemia [Unknown]
  - Colitis [Unknown]
  - Chills [Unknown]
  - Abdominal pain [Recovering/Resolving]
  - Rectal haemorrhage [Unknown]
  - Diarrhoea [Recovering/Resolving]
  - Lipase increased [Unknown]
  - Oedema peripheral [Unknown]
  - Fatigue [Unknown]
  - Hepatic steatosis [Unknown]
  - Kidney fibrosis [Unknown]
  - Deep vein thrombosis [Unknown]
  - Staphylococcal infection [Recovering/Resolving]
